FAERS Safety Report 7311908-1 (Version None)
Quarter: 2011Q1

REPORT INFORMATION
  Report Type: 
  Country: None (occurrence: None)
  Receive Date: 20110224
  Receipt Date: 20110223
  Transmission Date: 20110831
  Serious: No
  Sender: FDA-Public Use
  Company Number: US-TEVA-265850USA

PATIENT
  Sex: Female
  Weight: 46.762 kg

DRUGS (2)
  1. PLAN B ONE-STEP [Suspect]
     Indication: POST COITAL CONTRACEPTION
     Route: 048
     Dates: start: 20110123, end: 20110123
  2. PLAN B ONE-STEP [Suspect]
     Route: 048
     Dates: start: 20110201, end: 20110201

REACTIONS (2)
  - MENSTRUATION DELAYED [None]
  - MENSTRUATION IRREGULAR [None]
